FAERS Safety Report 9284222 (Version 1)
Quarter: 2013Q2

REPORT INFORMATION
  Report Type: Spontaneous
  Country: US (occurrence: US)
  Receive Date: 20130510
  Receipt Date: 20130510
  Transmission Date: 20140414
  Serious: No
  Sender: FDA-Public Use
  Company Number: US-COVIDIEN/TYCO HEALTHCARE/MALLINCKRODT-T201301541

PATIENT
  Age: 88 Year
  Sex: Male
  Weight: 65.31 kg

DRUGS (3)
  1. FENTANYL TRANSDERMAL SYSTEM [Suspect]
     Indication: BACK PAIN
     Dosage: 25 MCG/HR Q 3 DAYS
     Route: 062
     Dates: start: 201303
  2. HYDROCODONE W/APAP                 /01554201/ [Concomitant]
     Indication: BREAKTHROUGH PAIN
     Dosage: 5/500 MG
  3. ARANESP [Concomitant]
     Indication: MYELODYSPLASTIC SYNDROME
     Dosage: 300 MG Q 2 WEEK

REACTIONS (3)
  - Balance disorder [Not Recovered/Not Resolved]
  - Application site pruritus [Not Recovered/Not Resolved]
  - Application site erythema [Not Recovered/Not Resolved]
